FAERS Safety Report 5319661-8 (Version None)
Quarter: 2007Q2

REPORT INFORMATION
  Report Type: 
  Country: None (occurrence: None)
  Receive Date: 20070508
  Receipt Date: 20070501
  Transmission Date: 20071010
  Serious: Yes (Other)
  Sender: FDA-Public Use
  Company Number: US-MERCK-0704USA01746

PATIENT
  Sex: Male
  Weight: 86 kg

DRUGS (2)
  1. COZAAR [Suspect]
     Indication: HYPERTENSION
     Route: 048
     Dates: start: 20070409, end: 20070401
  2. AMBIEN [Concomitant]
     Indication: INSOMNIA
     Route: 065

REACTIONS (4)
  - DEHYDRATION [None]
  - DYSPNOEA [None]
  - RASH [None]
  - URTICARIA [None]
